FAERS Safety Report 18766071 (Version 1)
Quarter: 2021Q1

REPORT INFORMATION
  Report Type: Other
  Country: CA (occurrence: CA)
  Receive Date: 20210120
  Receipt Date: 20210120
  Transmission Date: 20210419
  Serious: Yes (Other)
  Sender: FDA-Public Use
  Company Number: CA-CELLTRION INC.-2021CA000361

PATIENT

DRUGS (9)
  1. RITUXIMAB (UNKNOWN) [Suspect]
     Active Substance: RITUXIMAB
     Indication: JUVENILE IDIOPATHIC ARTHRITIS
  2. CANNABIS SATIVA [Concomitant]
     Active Substance: CANNABIS SATIVA FLOWERING TOP
  3. METHOTREXATE. [Concomitant]
     Active Substance: METHOTREXATE
  4. RITUXIMAB (UNKNOWN) [Suspect]
     Active Substance: RITUXIMAB
     Indication: RHEUMATOID ARTHRITIS
     Dosage: 1000 MG, 1 EVERY 15 DAYS
     Route: 042
  5. FOLIC ACID. [Concomitant]
     Active Substance: FOLIC ACID
  6. DIPHENHYDRAMINE. [Concomitant]
     Active Substance: DIPHENHYDRAMINE
     Indication: PREMEDICATION
     Dosage: 50 MG
     Route: 048
  7. ACETAMINOPHEN. [Concomitant]
     Active Substance: ACETAMINOPHEN
     Indication: PREMEDICATION
     Dosage: 650 MG
     Route: 048
  8. METHYLPREDNISOLONE. [Concomitant]
     Active Substance: METHYLPREDNISOLONE
     Indication: PREMEDICATION
     Dosage: 100 MG
     Route: 042
  9. NAPROXEN. [Concomitant]
     Active Substance: NAPROXEN

REACTIONS (2)
  - Cartilage injury [Unknown]
  - Off label use [Unknown]
